FAERS Safety Report 11757393 (Version 1)
Quarter: 2015Q4

REPORT INFORMATION
  Report Type: Spontaneous
  Country: TR (occurrence: TR)
  Receive Date: 20151120
  Receipt Date: 20151120
  Transmission Date: 20160304
  Serious: Yes (Death, Other)
  Sender: FDA-Public Use
  Company Number: TR-BAYER-2013-056155

PATIENT
  Age: 67 Year
  Sex: Male
  Weight: 111 kg

DRUGS (5)
  1. REGORAFENIB [Suspect]
     Active Substance: REGORAFENIB
     Indication: COLORECTAL CANCER
     Dosage: 160 MG, DAILY
     Dates: start: 201302
  2. REGORAFENIB [Suspect]
     Active Substance: REGORAFENIB
     Indication: COLORECTAL CANCER
     Dosage: 160MG/DAY FOR 3 WEEKS AND HASN?T USED FOR 1 WEEK
  3. BELOC [Concomitant]
     Active Substance: METOPROLOL TARTRATE
     Indication: ARRHYTHMIA
  4. REGORAFENIB [Suspect]
     Active Substance: REGORAFENIB
     Indication: COLORECTAL CANCER
     Dosage: UNK
     Dates: start: 201301
  5. COZAAR [Concomitant]
     Active Substance: LOSARTAN POTASSIUM
     Indication: ARRHYTHMIA

REACTIONS (17)
  - Inflammation [None]
  - Gait disturbance [None]
  - Weight decreased [Not Recovered/Not Resolved]
  - Rash [None]
  - Abdominal pain [Not Recovered/Not Resolved]
  - Gastrointestinal motility disorder [None]
  - Fatigue [Not Recovered/Not Resolved]
  - Decreased appetite [Not Recovered/Not Resolved]
  - Skin exfoliation [Not Recovered/Not Resolved]
  - Paraesthesia [Not Recovered/Not Resolved]
  - Constipation [None]
  - Nausea [Not Recovered/Not Resolved]
  - Diarrhoea [None]
  - Colorectal cancer [Fatal]
  - Inflammation [Not Recovered/Not Resolved]
  - Wound [Not Recovered/Not Resolved]
  - Muscle spasms [Not Recovered/Not Resolved]

NARRATIVE: CASE EVENT DATE: 201302
